FAERS Safety Report 6253387-1 (Version None)
Quarter: 2009Q3

REPORT INFORMATION
  Report Type: 
  Country: None (occurrence: None)
  Receive Date: 20090701
  Receipt Date: 20090624
  Transmission Date: 20100115
  Serious: Yes (Other)
  Sender: FDA-Public Use
  Company Number: GB-ABBOTT-09P-167-0581703-00

PATIENT
  Sex: Male

DRUGS (2)
  1. EPILIM TABLETS [Suspect]
     Indication: EPILEPSY
  2. EPILIM TABLETS [Suspect]

REACTIONS (3)
  - DIZZINESS [None]
  - FEELING ABNORMAL [None]
  - MALAISE [None]
